FAERS Safety Report 5010830-3 (Version None)
Quarter: 2006Q2

REPORT INFORMATION
  Report Type: 
  Country: None (occurrence: None)
  Receive Date: 20060525
  Receipt Date: 20060516
  Transmission Date: 20061013
  Serious: Yes (Other)
  Sender: FDA-Public Use
  Company Number: ES-BRISTOL-MYERS SQUIBB COMPANY-13378229

PATIENT

DRUGS (1)
  1. NEOPLATIN [Suspect]

REACTIONS (3)
  - CHILLS [None]
  - DIZZINESS [None]
  - HYPOTENSION [None]
